FAERS Safety Report 17841908 (Version 1)
Quarter: 2020Q2

REPORT INFORMATION
  Report Type: Spontaneous
  Country: US (occurrence: US)
  Receive Date: 20200529
  Receipt Date: 20200529
  Transmission Date: 20200714
  Serious: No
  Sender: FDA-Public Use
  Company Number: US-BAUSCH-BL-2020-015333

PATIENT
  Age: 80 Year
  Sex: Male

DRUGS (2)
  1. ERYTHROMYCIN OPHTHALMIC OINTMENT USP 0.5% [Suspect]
     Active Substance: ERYTHROMYCIN
     Indication: PRODUCT USE IN UNAPPROVED INDICATION
  2. ERYTHROMYCIN OPHTHALMIC OINTMENT USP 0.5% [Suspect]
     Active Substance: ERYTHROMYCIN
     Indication: EYE IRRITATION
     Dosage: APPLY A SMALL AMOUNT OF OINTMENT TO THE LOWER EYELIDS ONCE DAILY IN THE EVENING
     Route: 047
     Dates: start: 2020

REACTIONS (2)
  - Product use in unapproved indication [Unknown]
  - Ocular discomfort [Not Recovered/Not Resolved]

NARRATIVE: CASE EVENT DATE: 2020
